FAERS Safety Report 8965549 (Version 1)
Quarter: 2012Q4

REPORT INFORMATION
  Report Type: Spontaneous
  Country: US (occurrence: None)
  Receive Date: 20121212
  Receipt Date: 20121212
  Transmission Date: 20130627
  Serious: Yes (Other)
  Sender: FDA-Public Use
  Company Number: None

PATIENT
  Age: 55 Year
  Sex: Male
  Weight: 83.01 kg

DRUGS (1)
  1. LEVAQUIN [Suspect]

REACTIONS (5)
  - Headache [None]
  - Tendon pain [None]
  - Neuralgia [None]
  - Stress [None]
  - Pain [None]
